FAERS Safety Report 20720801 (Version 1)
Quarter: 2022Q2

REPORT INFORMATION
  Report Type: Spontaneous
  Country: DK (occurrence: None)
  Receive Date: 20220418
  Receipt Date: 20220418
  Transmission Date: 20220720
  Serious: Yes (Hospitalization)
  Sender: FDA-Public Use
  Company Number: None

PATIENT
  Age: 41 Year
  Sex: Female
  Weight: 96 kg

DRUGS (1)
  1. ACETAMINOPHEN [Suspect]
     Active Substance: ACETAMINOPHEN
     Indication: Procedural pain
     Dosage: DOSAGE: UNKNOWN DOSE GIVEN FOR SEVERAL WEEKS, STRENGTH: UNKNOWN
     Dates: start: 2011

REACTIONS (1)
  - Asthma [Recovered/Resolved]
